FAERS Safety Report 12371393 (Version 1)
Quarter: 2016Q2

REPORT INFORMATION
  Report Type: Spontaneous
  Country: US (occurrence: US)
  Receive Date: 20160516
  Receipt Date: 20160516
  Transmission Date: 20160815
  Serious: Yes (Other)
  Sender: FDA-Public Use
  Company Number: US-ROCHE-1754094

PATIENT
  Age: 54 Year
  Sex: Female

DRUGS (12)
  1. EPIPEN [Concomitant]
     Active Substance: EPINEPHRINE
     Dosage: 0.3MG/0.3ML (1:1000) INJECTION, AUTO INJECTOR, FOR EMERGENCY USE ONLY, 2, 99
     Route: 065
     Dates: start: 20151111
  2. QNASL [Concomitant]
     Active Substance: BECLOMETHASONE DIPROPIONATE
     Dosage: ACTUATION NASAL AEROSOL SPRAY, 2 PUFFS EACH NOSTRIL
     Route: 065
     Dates: start: 20160222
  3. ALLEGRA [Concomitant]
     Active Substance: FEXOFENADINE HYDROCHLORIDE
     Dosage: 1,0
     Route: 048
     Dates: start: 20150420
  4. XOLAIR [Suspect]
     Active Substance: OMALIZUMAB
     Indication: ASTHMA
     Route: 058
     Dates: start: 201310
  5. CLONIDINE HCL [Concomitant]
     Active Substance: CLONIDINE HYDROCHLORIDE
     Dosage: QHS, 0,
     Route: 048
     Dates: start: 20151123
  6. SPIRIVA [Concomitant]
     Active Substance: TIOTROPIUM BROMIDE MONOHYDRATE
     Dosage: INHALATION CAPSULES, 1 INH QD, 3, 3
     Route: 065
     Dates: start: 20141230
  7. LEVOCETIRIZINE [Concomitant]
     Active Substance: LEVOCETIRIZINE
     Dosage: QPM, 90,3
     Route: 048
     Dates: start: 20160115
  8. ZYRTEC [Concomitant]
     Active Substance: CETIRIZINE HYDROCHLORIDE
     Dosage: 1, 0
     Route: 048
     Dates: start: 20150420
  9. BENADRYL [Concomitant]
     Active Substance: DIPHENHYDRAMINE HYDROCHLORIDE
     Dosage: 0
     Route: 065
     Dates: start: 20160309
  10. PROPYLENE GLYCOL [Concomitant]
     Active Substance: PROPYLENE GLYCOL
  11. DESOXIMETASONE. [Concomitant]
     Active Substance: DESOXIMETASONE
     Dosage: TOPICAL OINTMENT, APPLY SPARINGLY TO AFFECTED AREAS, 100, 5
     Route: 065
     Dates: start: 20160420
  12. DYMISTA [Concomitant]
     Active Substance: AZELASTINE HYDROCHLORIDE\FLUTICASONE PROPIONATE
     Dosage: 137 MCG- 50 MCG/ SPRAY NASAL SPRAY, 1 SPRAY EACH NOSTRIL Q, 12 HRS, 1, 3,
     Route: 065
     Dates: start: 20151229

REACTIONS (3)
  - Nasal polyps [Unknown]
  - Dyspnoea [Unknown]
  - Sinonasal papilloma [Not Recovered/Not Resolved]

NARRATIVE: CASE EVENT DATE: 201510
